FAERS Safety Report 13007525 (Version 1)
Quarter: 2016Q4

REPORT INFORMATION
  Report Type: Spontaneous
  Country: GB (occurrence: GB)
  Receive Date: 20161207
  Receipt Date: 20161207
  Transmission Date: 20170207
  Serious: Yes (Other)
  Sender: FDA-Public Use
  Company Number: GB-MYLANLABS-2016M1053298

PATIENT

DRUGS (1)
  1. CLOZARIL [Suspect]
     Active Substance: CLOZAPINE
     Indication: SCHIZOPHRENIA
     Dosage: UNK
     Route: 048
     Dates: start: 20160606, end: 20161201

REACTIONS (3)
  - Drug ineffective [Unknown]
  - Salivary hypersecretion [Unknown]
  - Nausea [Unknown]

NARRATIVE: CASE EVENT DATE: 2016
